FAERS Safety Report 6047334-5 (Version None)
Quarter: 2009Q1

REPORT INFORMATION
  Report Type: 
  Country: None (occurrence: None)
  Receive Date: 20090122
  Receipt Date: 20090108
  Transmission Date: 20090719
  Serious: Yes (Hospitalization, Other)
  Sender: FDA-Public Use
  Company Number: US-ELI_LILLY_AND_COMPANY-US200901001032

PATIENT
  Sex: Female

DRUGS (5)
  1. FORTEO [Suspect]
     Dosage: UNK, UNK
  2. CELEBREX [Concomitant]
  3. CYMBALTA [Concomitant]
  4. AMBIEN [Concomitant]
  5. RISPERDAL [Concomitant]

REACTIONS (1)
  - HIP ARTHROPLASTY [None]
